FAERS Safety Report 13469198 (Version 3)
Quarter: 2017Q2

REPORT INFORMATION
  Report Type: Spontaneous
  Country: US (occurrence: US)
  Receive Date: 20170421
  Receipt Date: 20170601
  Transmission Date: 20170830
  Serious: No
  Sender: FDA-Public Use
  Company Number: US-ACTELION-A-NJ2017-152771

PATIENT
  Age: 49 Year
  Sex: Male

DRUGS (1)
  1. OPSUMIT [Suspect]
     Active Substance: MACITENTAN
     Indication: PULMONARY ARTERIAL HYPERTENSION
     Dosage: 10 MG, QD
     Route: 048
     Dates: start: 201704, end: 201704

REACTIONS (6)
  - Constipation [Recovered/Resolved]
  - Condition aggravated [Not Recovered/Not Resolved]
  - Fluid retention [Recovered/Resolved]
  - Hypersensitivity [Unknown]
  - Gait disturbance [Not Recovered/Not Resolved]
  - Abdominal distension [Not Recovered/Not Resolved]

NARRATIVE: CASE EVENT DATE: 201704
